FAERS Safety Report 4437184-5 (Version None)
Quarter: 2004Q3

REPORT INFORMATION
  Report Type: 
  Country: None (occurrence: None)
  Receive Date: 20040827
  Receipt Date: 20040816
  Transmission Date: 20050211
  Serious: Yes (Hospitalization)
  Sender: FDA-Public Use
  Company Number: 2004228322US

PATIENT
  Age: 65 Year
  Sex: Male
  Weight: 77.6 kg

DRUGS (9)
  1. CAMPTOSAR [Suspect]
     Indication: LUNG NEOPLASM MALIGNANT
     Dosage: 45 MG/M2, CYCLIC, IV
     Route: 042
     Dates: start: 20040406, end: 20040622
  2. CARBOPLATIN [Suspect]
     Indication: LUNG NEOPLASM MALIGNANT
     Dosage: 330 MG, CYCLIC, IV
     Route: 042
     Dates: start: 20040406, end: 20040609
  3. GLEEVEC [Suspect]
     Indication: LUNG NEOPLASM MALIGNANT
     Dosage: SEE IMAGE
     Route: 042
     Dates: start: 20040406, end: 20040629
  4. GLEEVEC [Suspect]
     Indication: LUNG NEOPLASM MALIGNANT
     Dosage: SEE IMAGE
     Route: 042
     Dates: start: 20040720
  5. DURAGESIC [Concomitant]
  6. ZOFRAN [Concomitant]
  7. IMODIUM [Concomitant]
  8. PROMETHAZINE [Concomitant]
  9. PERCOCET (OXYCODONE HYDRCOCHLORIDE, OXYCODONE TEREPHTHALATE) [Concomitant]

REACTIONS (7)
  - ANAEMIA [None]
  - ASTHENIA [None]
  - DECREASED ACTIVITY [None]
  - DEHYDRATION [None]
  - FLUID INTAKE REDUCED [None]
  - MARKEDLY REDUCED DIETARY INTAKE [None]
  - NAUSEA [None]
